FAERS Safety Report 6139636-9 (Version None)
Quarter: 2009Q2

REPORT INFORMATION
  Report Type: 
  Country: None (occurrence: None)
  Receive Date: 20090401
  Receipt Date: 20090210
  Transmission Date: 20091009
  Serious: No
  Sender: FDA-Public Use
  Company Number: US-BAYER-200910947BCC

PATIENT
  Age: 23 Year
  Sex: Female

DRUGS (5)
  1. MIDOL [Suspect]
     Indication: DYSMENORRHOEA
     Dosage: UNIT DOSE: 220 MG
     Route: 048
     Dates: start: 20090211
  2. MIDOL [Suspect]
     Dosage: UNIT DOSE: 220 MG
     Route: 048
     Dates: start: 20090211
  3. MIDOL [Suspect]
     Dosage: UNIT DOSE: 220 MG
     Route: 048
     Dates: start: 20090211
  4. MIDOL [Suspect]
     Dosage: UNIT DOSE: 220 MG
     Route: 048
     Dates: start: 20090211
  5. FLAGYL [Concomitant]

REACTIONS (1)
  - NO ADVERSE EVENT [None]
